FAERS Safety Report 17882715 (Version 2)
Quarter: 2021Q2

REPORT INFORMATION
  Report Type: Spontaneous
  Country: CA (occurrence: CA)
  Receive Date: 20200611
  Receipt Date: 20210621
  Transmission Date: 20210717
  Serious: Yes (Other)
  Sender: FDA-Public Use
  Company Number: CA-ABBVIE-20K-028-3436354-00

PATIENT
  Sex: Female

DRUGS (6)
  1. FULVESTRANT. [Concomitant]
     Active Substance: FULVESTRANT
     Indication: OVARIAN CANCER METASTATIC
     Dosage: (2 X250 MG) DAY 1, 15 AND 28 (FOR THE FIRST MONTH)
     Route: 030
     Dates: start: 2020
  2. MEGACE [Suspect]
     Active Substance: MEGESTROL ACETATE
     Indication: PRODUCT USED FOR UNKNOWN INDICATION
     Route: 065
  3. IBRANCE [Suspect]
     Active Substance: PALBOCICLIB
     Indication: OVARIAN CANCER METASTATIC
     Dosage: 125 MG, CYCLIC (DAILY 21/28 DAYS), ONCE A DAY WITH FOOD.
     Route: 048
     Dates: start: 2020
  4. LUPRON DEPOT [Suspect]
     Active Substance: LEUPROLIDE ACETATE
     Indication: OVARIAN CANCER METASTATIC
     Route: 030
  5. LETROZOLE. [Suspect]
     Active Substance: LETROZOLE
     Indication: PRODUCT USED FOR UNKNOWN INDICATION
     Route: 065
  6. TAMOXIFEN [Suspect]
     Active Substance: TAMOXIFEN
     Indication: PRODUCT USED FOR UNKNOWN INDICATION
     Route: 065

REACTIONS (7)
  - Neoplasm progression [Unknown]
  - Ovarian cancer metastatic [Unknown]
  - Drug intolerance [Unknown]
  - Oestrogen receptor assay positive [Unknown]
  - Drug ineffective [Unknown]
  - Breast cancer [Unknown]
  - Off label use [Unknown]
